FAERS Safety Report 4838823-7 (Version None)
Quarter: 2005Q4

REPORT INFORMATION
  Report Type: 
  Country: None (occurrence: None)
  Receive Date: 20051129
  Receipt Date: 20051017
  Transmission Date: 20060501
  Serious: No
  Sender: FDA-Public Use
  Company Number: US-GLAXOSMITHKLINE-A0578420A

PATIENT
  Age: 35 Year
  Sex: Male
  Weight: 59 kg

DRUGS (1)
  1. COMMIT [Suspect]

REACTIONS (3)
  - HAEMATOCHEZIA [None]
  - MUCOUS STOOLS [None]
  - STOMACH DISCOMFORT [None]
